FAERS Safety Report 12873315 (Version 1)
Quarter: 2016Q4

REPORT INFORMATION
  Report Type: Spontaneous
  Country: US (occurrence: US)
  Receive Date: 20161021
  Receipt Date: 20161021
  Transmission Date: 20170207
  Serious: No
  Sender: FDA-Public Use
  Company Number: US-ALLERGAN-1517555US

PATIENT
  Age: 3 Year
  Sex: Female
  Weight: 15.42 kg

DRUGS (1)
  1. FML [Suspect]
     Active Substance: FLUOROMETHOLONE
     Indication: CONJUNCTIVITIS
     Dosage: UNK UNK, TID
     Dates: start: 20150802, end: 201508

REACTIONS (8)
  - Skin hypopigmentation [Unknown]
  - Eye injury [Unknown]
  - Vision blurred [Not Recovered/Not Resolved]
  - Dry skin [Unknown]
  - Eye swelling [Recovering/Resolving]
  - Photosensitivity reaction [Recovered/Resolved]
  - Rash [Unknown]
  - Eye irritation [Recovered/Resolved]
